FAERS Safety Report 7454006-9 (Version None)
Quarter: 2011Q2

REPORT INFORMATION
  Report Type: 
  Country: None (occurrence: None)
  Receive Date: 20110502
  Receipt Date: 20110426
  Transmission Date: 20111010
  Serious: Yes (Hospitalization, Other)
  Sender: FDA-Public Use
  Company Number: US-BAYER-2011-035827

PATIENT
  Sex: Female

DRUGS (1)
  1. BETAPACE AF [Suspect]
     Indication: ATRIAL FIBRILLATION
     Dosage: UNK
     Route: 048

REACTIONS (2)
  - ALOPECIA [None]
  - ATRIAL FIBRILLATION [None]
